FAERS Safety Report 23702526 (Version 1)
Quarter: 2024Q2

REPORT INFORMATION
  Report Type: Spontaneous
  Country: US (occurrence: None)
  Receive Date: 20240402
  Receipt Date: 20240402
  Transmission Date: 20240716
  Serious: No
  Sender: FDA-Public Use
  Company Number: None

PATIENT
  Age: 27 Month
  Sex: Male

DRUGS (10)
  1. TOBRAMYCIN [Suspect]
     Active Substance: TOBRAMYCIN
     Indication: Dependence on respirator
     Dosage: FREQUENCY : AS DIRECTED;?OTHER ROUTE : VIA NEBULIZER;?
     Route: 050
     Dates: start: 20230616
  2. ALBUTEROL [Concomitant]
  3. CIPRODEX [Concomitant]
  4. ERYTHROMYCIN [Concomitant]
  5. FLOVENT [Concomitant]
     Active Substance: FLUTICASONE PROPIONATE
  6. MIRALAX [Concomitant]
     Active Substance: POLYETHYLENE GLYCOL 3350
  7. MOTRIN IB [Concomitant]
     Active Substance: IBUPROFEN
  8. PRILOSEC [Concomitant]
     Active Substance: OMEPRAZOLE MAGNESIUM
  9. SODIUM CHLORIDE [Concomitant]
     Active Substance: SODIUM CHLORIDE
  10. TYLENOL [Concomitant]

REACTIONS (1)
  - Abscess neck [None]

NARRATIVE: CASE EVENT DATE: 20240305
